FAERS Safety Report 7042700-3 (Version None)
Quarter: 2010Q4

REPORT INFORMATION
  Report Type: 
  Country: None (occurrence: None)
  Receive Date: 20101013
  Receipt Date: 20100415
  Transmission Date: 20110411
  Serious: No
  Sender: FDA-Public Use
  Company Number: US-ASTRAZENECA-2010SE16722

PATIENT
  Age: 56 Year
  Sex: Female
  Weight: 113.4 kg

DRUGS (2)
  1. SYMBICORT [Suspect]
     Dosage: 160/4.5 2 PUFFS
     Route: 055
     Dates: start: 20100318
  2. SYMBICORT [Suspect]
     Dosage: 1 PUFFS
     Route: 055
     Dates: start: 20100403

REACTIONS (6)
  - BLOOD PRESSURE INCREASED [None]
  - DIZZINESS [None]
  - FEELING ABNORMAL [None]
  - INTENTIONAL DRUG MISUSE [None]
  - OROPHARYNGEAL PAIN [None]
  - PAIN IN JAW [None]
